FAERS Safety Report 13780843 (Version 1)
Quarter: 2017Q3

REPORT INFORMATION
  Report Type: Spontaneous
  Country: US (occurrence: US)
  Receive Date: 20170721
  Receipt Date: 20170721
  Transmission Date: 20171127
  Serious: Yes (Disabling)
  Sender: FDA-Public Use
  Company Number: None

PATIENT
  Age: 29 Year
  Sex: Male
  Weight: 94.5 kg

DRUGS (2)
  1. CREST PRO-HEALTH RINSE [Suspect]
     Active Substance: CETYLPYRIDINIUM CHLORIDE
     Indication: DENTAL DISORDER PROPHYLAXIS
     Dosage: ?          QUANTITY:20 ML;OTHER ROUTE:SWISH IN MOUTH?
     Dates: start: 20170717, end: 20170718
  2. IBUPROFEN. [Concomitant]
     Active Substance: IBUPROFEN

REACTIONS (11)
  - Gingival ulceration [None]
  - Hypoaesthesia oral [None]
  - Salivary hypersecretion [None]
  - Glossodynia [None]
  - Decreased appetite [None]
  - Oral disorder [None]
  - Glossitis [None]
  - Ageusia [None]
  - Eating disorder [None]
  - Dysgeusia [None]
  - Impaired work ability [None]

NARRATIVE: CASE EVENT DATE: 20170717
